FAERS Safety Report 10071223 (Version 2)
Quarter: 2014Q2

REPORT INFORMATION
  Report Type: Spontaneous
  Country: US (occurrence: US)
  Receive Date: 20140410
  Receipt Date: 20140506
  Transmission Date: 20141212
  Serious: No
  Sender: FDA-Public Use
  Company Number: US-TEVA-474702USA

PATIENT
  Age: 17 Year
  Sex: Male

DRUGS (2)
  1. CLARAVIS [Suspect]
     Indication: ACNE
     Route: 048
     Dates: start: 20131127, end: 201402
  2. CLARAVIS [Suspect]
     Route: 048
     Dates: start: 201402

REACTIONS (1)
  - Blood triglycerides increased [Recovered/Resolved]
